FAERS Safety Report 9003550 (Version 2)
Quarter: 2013Q4

REPORT INFORMATION
  Report Type: Spontaneous
  Country: AR (occurrence: AR)
  Receive Date: 20130108
  Receipt Date: 20131219
  Transmission Date: 20140711
  Serious: Yes (Hospitalization, Other)
  Sender: FDA-Public Use
  Company Number: AR-AMGEN-ARGSP2013001018

PATIENT
  Age: 77 Year
  Sex: Female

DRUGS (1)
  1. ENBREL [Suspect]
     Indication: RHEUMATOID ARTHRITIS
     Dosage: 25 MG, 2X/WEEK
     Route: 065
     Dates: start: 20060308

REACTIONS (10)
  - Varicose ulceration [Recovered/Resolved]
  - Depression [Unknown]
  - Dysthymic disorder [Unknown]
  - Phobia [Unknown]
  - Decreased immune responsiveness [Unknown]
  - Vascular insufficiency [Not Recovered/Not Resolved]
  - Inflammation [Not Recovered/Not Resolved]
  - Skin discolouration [Not Recovered/Not Resolved]
  - Infection [Unknown]
  - Erysipelas [Unknown]
